FAERS Safety Report 8546398-4 (Version None)
Quarter: 2012Q3

REPORT INFORMATION
  Report Type: 
  Country: None (occurrence: None)
  Receive Date: 20120727
  Receipt Date: 20120430
  Transmission Date: 20120928
  Serious: No
  Sender: FDA-Public Use
  Company Number: US-ASTRAZENECA-2012SE00891

PATIENT
  Age: 64 Year
  Sex: Female

DRUGS (3)
  1. SEROQUEL [Suspect]
     Indication: BIPOLAR DISORDER
     Route: 048
  2. CLARITIN-D [Concomitant]
  3. LAMICTAL [Concomitant]
     Indication: BIPOLAR DISORDER

REACTIONS (3)
  - COUGH [None]
  - SEASONAL ALLERGY [None]
  - FEELING ABNORMAL [None]
